FAERS Safety Report 15894279 (Version 1)
Quarter: 2019Q1

REPORT INFORMATION
  Report Type: Spontaneous
  Country: US (occurrence: US)
  Receive Date: 20190130
  Receipt Date: 20190130
  Transmission Date: 20190417
  Serious: No
  Sender: FDA-Public Use
  Company Number: None

PATIENT
  Age: 25 Year
  Sex: Female
  Weight: 58.97 kg

DRUGS (1)
  1. KYLEENA [Suspect]
     Active Substance: LEVONORGESTREL

REACTIONS (8)
  - Hormone level abnormal [None]
  - Crying [None]
  - Somnolence [None]
  - Muscle spasms [None]
  - Anxiety [None]
  - Emotional disorder [None]
  - Back pain [None]
  - Dizziness [None]

NARRATIVE: CASE EVENT DATE: 20190130
